FAERS Safety Report 10950817 (Version 7)
Quarter: 2015Q4

REPORT INFORMATION
  Report Type: Spontaneous
  Country: US (occurrence: US)
  Receive Date: 20150324
  Receipt Date: 20151216
  Transmission Date: 20160304
  Serious: Yes (Congenital Anomaly, Other)
  Sender: FDA-Public Use
  Company Number: US-ELI_LILLY_AND_COMPANY-US201503005848

PATIENT
  Age: 3 Month
  Sex: Female

DRUGS (5)
  1. ZITHROMAX [Concomitant]
     Active Substance: AZITHROMYCIN DIHYDRATE
     Indication: BRONCHITIS
     Dosage: 250 MG, UNK
     Route: 064
     Dates: start: 20040430
  2. FERROUS SULFATE [Concomitant]
     Active Substance: FERROUS SULFATE\FERROUS SULFATE, DRIED
     Indication: PRODUCT USED FOR UNKNOWN INDICATION
     Dosage: 325 MG, BID
     Route: 064
     Dates: start: 20040414
  3. FLAGYL [Concomitant]
     Active Substance: METRONIDAZOLE\METRONIDAZOLE HYDROCHLORIDE
     Indication: VULVOVAGINITIS
     Dosage: 500 MG, BID
     Route: 064
     Dates: start: 20031124
  4. PROZAC [Suspect]
     Active Substance: FLUOXETINE HYDROCHLORIDE
     Indication: DEPRESSION
     Dosage: UNK, UNKNOWN
     Route: 064
  5. NOVANATAL [Concomitant]
     Indication: PRODUCT USED FOR UNKNOWN INDICATION
     Dosage: UNK
     Route: 064
     Dates: start: 20031124

REACTIONS (32)
  - Incontinence [Unknown]
  - Syringomyelia [Unknown]
  - Gait disturbance [Unknown]
  - Micturition urgency [Unknown]
  - Foetal exposure during pregnancy [Unknown]
  - Diarrhoea [Unknown]
  - Tethered cord syndrome [Not Recovered/Not Resolved]
  - Pain in extremity [Unknown]
  - Pain in extremity [Unknown]
  - Urinary tract infection [Unknown]
  - Constipation [Unknown]
  - Spina bifida occulta [Unknown]
  - Meningomyelocele [Unknown]
  - Neurogenic bladder [Unknown]
  - Lipoma [Unknown]
  - Muscular weakness [Not Recovered/Not Resolved]
  - Hypoaesthesia [Unknown]
  - Paraesthesia [Unknown]
  - Premature baby [Unknown]
  - Urinary tract infection [Unknown]
  - Hypoglycaemia [Recovered/Resolved]
  - Bladder trabeculation [Unknown]
  - Urinary tract infection [Unknown]
  - Lipomeningocele [Unknown]
  - Bladder disorder [Unknown]
  - Hydronephrosis [Unknown]
  - Urinary tract infection [Unknown]
  - Encopresis [Unknown]
  - Muscular weakness [Unknown]
  - Fibrosis [Unknown]
  - Scoliosis [Unknown]
  - Neurogenic bowel [Unknown]

NARRATIVE: CASE EVENT DATE: 20040917
